FAERS Safety Report 4436332-0 (Version None)
Quarter: 2004Q3

REPORT INFORMATION
  Report Type: 
  Country: None (occurrence: None)
  Receive Date: 20040728
  Receipt Date: 20030606
  Transmission Date: 20050211
  Serious: Yes (Hospitalization)
  Sender: FDA-Public Use
  Company Number: 201150

PATIENT
  Age: 64 Year
  Sex: Male

DRUGS (3)
  1. RITUXAN [Suspect]
     Indication: NON-HODGKIN'S LYMPHOMA
     Dosage: SINGLE, INTRAVENOUS
     Route: 042
     Dates: start: 20021028, end: 20021028
  2. ZEVALIN [Suspect]
     Dosage: 5.8 MCI, SINGLE, INTRAVENOUS
     Route: 042
  3. IBRITUMOMAB TIUXETAN)IBRITUMOMAB TIUXETAN) [Suspect]
     Indication: NON-HODGKIN'S LYMPHOMA

REACTIONS (2)
  - PNEUMONIA [None]
  - THROMBOCYTOPENIA [None]
